FAERS Safety Report 6869925-1 (Version None)
Quarter: 2010Q3

REPORT INFORMATION
  Report Type: 
  Country: None (occurrence: None)
  Receive Date: 20100722
  Receipt Date: 20081020
  Transmission Date: 20110219
  Serious: Yes (Other)
  Sender: FDA-Public Use
  Company Number: US-PFIZER INC-2008078265

PATIENT
  Age: 45 Year
  Sex: Female
  Weight: 92.08 kg

DRUGS (4)
  1. CHANTIX [Suspect]
     Indication: SMOKING CESSATION THERAPY
     Dates: start: 20080910
  2. OTHER RESPIRATORY SYSTEM PRODUCTS [Concomitant]
  3. VICODIN [Concomitant]
  4. LYRICA [Concomitant]

REACTIONS (7)
  - CHEST DISCOMFORT [None]
  - HEADACHE [None]
  - HEART RATE INCREASED [None]
  - HYPERHIDROSIS [None]
  - MALAISE [None]
  - SOMNOLENCE [None]
  - VOMITING [None]
